FAERS Safety Report 6700455-3 (Version None)
Quarter: 2010Q2

REPORT INFORMATION
  Report Type: 
  Country: None (occurrence: None)
  Receive Date: 20100428
  Receipt Date: 20100423
  Transmission Date: 20101027
  Serious: Yes (Life-Threatening)
  Sender: FDA-Public Use
  Company Number: JP-ASTRAZENECA-2010SE11774

PATIENT
  Age: 19008 Day
  Sex: Male
  Weight: 58 kg

DRUGS (18)
  1. SEROQUEL [Suspect]
     Indication: RESTLESSNESS
     Route: 048
     Dates: start: 20100115, end: 20100121
  2. SEROQUEL [Suspect]
     Indication: HALLUCINATION
     Route: 048
     Dates: start: 20100115, end: 20100121
  3. SEROQUEL [Suspect]
     Indication: DELIRIUM
     Route: 048
     Dates: start: 20100115, end: 20100121
  4. SEROQUEL [Suspect]
     Route: 048
     Dates: start: 20100122, end: 20100203
  5. SEROQUEL [Suspect]
     Route: 048
     Dates: start: 20100122, end: 20100203
  6. SEROQUEL [Suspect]
     Route: 048
     Dates: start: 20100122, end: 20100203
  7. SEROQUEL [Suspect]
     Route: 048
     Dates: start: 20100204, end: 20100207
  8. SEROQUEL [Suspect]
     Route: 048
     Dates: start: 20100204, end: 20100207
  9. SEROQUEL [Suspect]
     Route: 048
     Dates: start: 20100204, end: 20100207
  10. COTRIM [Concomitant]
     Dates: start: 20090924
  11. LASIX [Concomitant]
     Dates: start: 20090917
  12. ALLELOCK [Concomitant]
  13. DESYREL [Concomitant]
     Dates: start: 20090920, end: 20100207
  14. PROTECADIN [Concomitant]
  15. ZYPREXA [Concomitant]
     Dates: start: 20090919, end: 20100207
  16. ALDACTONE [Concomitant]
  17. ALLOPURINOL [Concomitant]
  18. BARACLUDE [Concomitant]
     Dates: start: 20090925

REACTIONS (1)
  - AGRANULOCYTOSIS [None]
